FAERS Safety Report 4537527-8 (Version None)
Quarter: 2004Q4

REPORT INFORMATION
  Report Type: 
  Country: None (occurrence: None)
  Receive Date: 20041216
  Receipt Date: 20040408
  Transmission Date: 20050328
  Serious: Yes (Disabling)
  Sender: FDA-Public Use
  Company Number: HQWYE408809APR04

PATIENT
  Age: 34 Year
  Sex: Male
  Weight: 81.72 kg

DRUGS (4)
  1. EFFEXOR XR [Suspect]
     Indication: DEPRESSION
     Dosage: 75 MG 1X PER 1 DAY, ORAL
     Route: 048
     Dates: start: 20030401
  2. ALCOHOL (ETHANOL) [Suspect]
     Dosage: ORAL
     Route: 048
  3. ALCOHOL (ETHANOL) [Suspect]
     Dosage: 4 GLASSES OF WINE, ORAL
     Route: 048
     Dates: start: 20040101, end: 20040101
  4. TRAZODONE HCL [Concomitant]

REACTIONS (3)
  - FATIGUE [None]
  - HEPATIC ENZYME INCREASED [None]
  - THINKING ABNORMAL [None]
